FAERS Safety Report 11889292 (Version 5)
Quarter: 2016Q2

REPORT INFORMATION
  Report Type: Spontaneous
  Country: US (occurrence: US)
  Receive Date: 20160105
  Receipt Date: 20160425
  Transmission Date: 20160815
  Serious: Yes (Hospitalization)
  Sender: FDA-Public Use
  Company Number: US-ACTELION-A-NJ2015-129446

PATIENT
  Age: 66 Year
  Sex: Female

DRUGS (5)
  1. VENTAVIS [Suspect]
     Active Substance: ILOPROST
     Dosage: 5 MCG, 1-2X/DAY
     Route: 055
     Dates: end: 2016
  2. RIOCIGUAT [Concomitant]
     Active Substance: RIOCIGUAT
     Dosage: UNK
  3. VENTAVIS [Suspect]
     Active Substance: ILOPROST
     Indication: PULMONARY ARTERIAL HYPERTENSION
     Dosage: 5 MCG, UNK
     Route: 055
     Dates: start: 20151116
  4. VENTAVIS [Suspect]
     Active Substance: ILOPROST
     Dosage: 5 MCG, 6 - 9X/DAILY
     Route: 055
     Dates: end: 2016
  5. VENTAVIS [Suspect]
     Active Substance: ILOPROST
     Dosage: UNK, 3 X DAILY
     Route: 055

REACTIONS (9)
  - Dyspnoea [Not Recovered/Not Resolved]
  - Dizziness [Recovered/Resolved]
  - Oral pain [Unknown]
  - Fluid retention [Not Recovered/Not Resolved]
  - Peripheral swelling [Not Recovered/Not Resolved]
  - Stomatitis [Recovered/Resolved]
  - Oxygen saturation decreased [Unknown]
  - Urinary tract infection [Unknown]
  - No therapeutic response [Recovered/Resolved]

NARRATIVE: CASE EVENT DATE: 20151120
